FAERS Safety Report 19498263 (Version 1)
Quarter: 2021Q3

REPORT INFORMATION
  Report Type: Spontaneous
  Country: DE (occurrence: DE)
  Receive Date: 20210706
  Receipt Date: 20210706
  Transmission Date: 20211014
  Serious: Yes (Hospitalization)
  Sender: FDA-Public Use
  Company Number: DE-TEVA-2021-DE-1929285

PATIENT
  Age: 75 Year
  Sex: Male
  Weight: 90 kg

DRUGS (8)
  1. METAMIZOL [Concomitant]
     Active Substance: METAMIZOLE SODIUM
     Dosage: 2000 MILLIGRAM DAILY;  1?1?1?1
     Route: 048
  2. GLIMEPIRID [Suspect]
     Active Substance: GLIMEPIRIDE
     Dosage: 4 MILLIGRAM DAILY;  1?0?1?0 ,MEDICATION ERRORS
     Route: 048
  3. FOSTER 100/6MIKROGRAMM [Concomitant]
     Dosage: 2 DOSAGE FORMS DAILY; 2?0?0?0
     Route: 055
  4. INSULIN (HUMAN)/INSULIN?ISOPHAN (HUMAN) [Suspect]
     Active Substance: INSULIN HUMAN
     Dosage: 300 IU, REQUIRED, PRE?FILLED SYRINGES, MEDICATION ERRORS
     Route: 058
  5. INSULIN ASPART [Suspect]
     Active Substance: INSULIN ASPART
     Dosage: 300 IU, ACCORDING TO THE SCHEME, AMPOULES, MEDICATION ERRORS
     Route: 058
  6. ACETYLSALICYLSAURE [Concomitant]
     Active Substance: ASPIRIN
     Dosage: 100 MILLIGRAM DAILY;  1?0?0?0
     Route: 048
  7. INSULIN DETEMIR [Suspect]
     Active Substance: INSULIN DETEMIR
     Dosage: 300 IU, ACCORDING TO THE SCHEME, PRE?FILLED SYRINGES ,MEDICATION ERRORS
     Route: 058
  8. RAMIPRIL. [Concomitant]
     Active Substance: RAMIPRIL
     Dosage: 5 MILLIGRAM DAILY;  1?0?0?0
     Route: 048

REACTIONS (3)
  - Medication error [Unknown]
  - Musculoskeletal pain [Unknown]
  - Peripheral swelling [Unknown]
